FAERS Safety Report 13100461 (Version 1)
Quarter: 2017Q1

REPORT INFORMATION
  Report Type: Spontaneous
  Country: US (occurrence: US)
  Receive Date: 20170109
  Receipt Date: 20170109
  Transmission Date: 20170428
  Serious: Yes (Other)
  Sender: FDA-Public Use
  Company Number: None

PATIENT
  Age: 40 Year
  Sex: Female
  Weight: 54 kg

DRUGS (8)
  1. SUMATRIPTAN. [Concomitant]
     Active Substance: SUMATRIPTAN
  2. LACTAID [Concomitant]
     Active Substance: LACTASE
  3. HYOSCYAMINE ER [Concomitant]
     Active Substance: HYOSCYAMINE SULFATE
  4. ZECUITY [Suspect]
     Active Substance: SUMATRIPTAN SUCCINATE
     Indication: MIGRAINE
     Dosage: ?          QUANTITY:4 PATCH(ES);?
     Route: 062
     Dates: start: 20160201, end: 20160801
  5. EXCEDRIN [Concomitant]
     Active Substance: ACETAMINOPHEN\ASPIRIN\CAFFEINE
  6. BOTOX [Concomitant]
     Active Substance: ONABOTULINUMTOXINA
  7. CIMETIDINE [Concomitant]
     Active Substance: CIMETIDINE
  8. ADDERALL XR [Concomitant]
     Active Substance: AMPHETAMINE ASPARTATE\AMPHETAMINE SULFATE\DEXTROAMPHETAMINE SACCHARATE\DEXTROAMPHETAMINE SULFATE

REACTIONS (7)
  - Scar [None]
  - Blister [None]
  - Application site erythema [None]
  - Application site irritation [None]
  - Application site rash [None]
  - Application site burn [None]
  - Skin irritation [None]

NARRATIVE: CASE EVENT DATE: 20160201
